FAERS Safety Report 6024432-3 (Version None)
Quarter: 2008Q4

REPORT INFORMATION
  Report Type: 
  Country: None (occurrence: None)
  Receive Date: 20081231
  Receipt Date: 20081222
  Transmission Date: 20090506
  Serious: Yes (Other)
  Sender: FDA-Public Use
  Company Number: PHEH2008US11321

PATIENT
  Sex: Female

DRUGS (1)
  1. FEMARA [Suspect]
     Dosage: UNK

REACTIONS (6)
  - ARTHRALGIA [None]
  - HOT FLUSH [None]
  - MALAISE [None]
  - NIGHT SWEATS [None]
  - OSTEOPOROSIS [None]
  - THYROID DISORDER [None]
